FAERS Safety Report 9738601 (Version 1)
Quarter: 2013Q4

REPORT INFORMATION
  Report Type: Spontaneous
  Country: US (occurrence: US)
  Receive Date: 20131209
  Receipt Date: 20131209
  Transmission Date: 20140711
  Serious: Yes (Other)
  Sender: FDA-Public Use
  Company Number: US-AMGEN-USASP2013085142

PATIENT
  Age: 44 Year
  Sex: Female

DRUGS (1)
  1. ENBREL [Suspect]
     Indication: RHEUMATOID ARTHRITIS
     Dosage: 50 MG, QWK
     Route: 065
     Dates: start: 20130801, end: 20130915

REACTIONS (4)
  - Cardiac stress test abnormal [Recovered/Resolved]
  - Hiatus hernia [Recovered/Resolved]
  - Epistaxis [Recovered/Resolved]
  - Sinusitis [Recovered/Resolved]
